FAERS Safety Report 6595854-7 (Version None)
Quarter: 2010Q1

REPORT INFORMATION
  Report Type: 
  Country: None (occurrence: None)
  Receive Date: 20100219
  Receipt Date: 20100219
  Transmission Date: 20100710
  Serious: Yes (Death, Life-Threatening, Hospitalization)
  Sender: FDA-Public Use
  Company Number: None

PATIENT
  Age: 67 Year
  Sex: Male
  Weight: 72.5755 kg

DRUGS (1)
  1. PACERONE [Suspect]
     Indication: VENTRICULAR TACHYCARDIA
     Dosage: 200MG 1 X DAILY MOUTH
     Route: 048
     Dates: start: 20040801, end: 20090101

REACTIONS (2)
  - DYSPNOEA [None]
  - PULMONARY TOXICITY [None]
